FAERS Safety Report 25701200 (Version 1)
Quarter: 2025Q3

REPORT INFORMATION
  Report Type: Spontaneous
  Country: US (occurrence: US)
  Receive Date: 20250819
  Receipt Date: 20250819
  Transmission Date: 20251021
  Serious: Yes (Death, Other)
  Sender: MACLEODS
  Company Number: US-MACLEODS PHARMA-MAC2025054718

PATIENT

DRUGS (2)
  1. HYDRALAZINE [Suspect]
     Active Substance: HYDRALAZINE HYDROCHLORIDE
     Indication: Product used for unknown indication
     Route: 065
  2. HYDRALAZINE [Suspect]
     Active Substance: HYDRALAZINE HYDROCHLORIDE
     Route: 065

REACTIONS (8)
  - Anti-neutrophil cytoplasmic antibody positive vasculitis [Fatal]
  - Pulmonary alveolar haemorrhage [Fatal]
  - Systemic lupus erythematosus [Unknown]
  - Nephrosclerosis [Recovering/Resolving]
  - Glomerulonephritis [Recovering/Resolving]
  - Renal tubular injury [Recovering/Resolving]
  - Glomerulonephritis membranous [Recovering/Resolving]
  - Overlap syndrome [Unknown]
